FAERS Safety Report 5970223-9 (Version None)
Quarter: 2008Q4

REPORT INFORMATION
  Report Type: 
  Country: None (occurrence: None)
  Receive Date: 20081126
  Receipt Date: 20081016
  Transmission Date: 20090506
  Serious: No
  Sender: FDA-Public Use
  Company Number: US-ABBOTT-08P-163-0482258-00

PATIENT
  Sex: Female

DRUGS (3)
  1. SIMCOR [Suspect]
     Indication: BLOOD TRIGLYCERIDES INCREASED
     Dosage: 500/20MG
     Route: 048
     Dates: start: 20080929
  2. CELECOXIB [Concomitant]
     Indication: ARTHRITIS
     Route: 048
  3. CONJUGATED ESTROGENS [Concomitant]
     Indication: HOT FLUSH
     Route: 048

REACTIONS (1)
  - FLUSHING [None]
